FAERS Safety Report 11758728 (Version 1)
Quarter: 2015Q4

REPORT INFORMATION
  Report Type: Spontaneous
  Country: US (occurrence: None)
  Receive Date: 20151119
  Receipt Date: 20151119
  Transmission Date: 20160304
  Serious: No
  Sender: FDA-Public Use
  Company Number: None

PATIENT
  Age: 64 Year
  Sex: Female
  Weight: 52.16 kg

DRUGS (14)
  1. FOLATE [Concomitant]
     Active Substance: FOLATE SODIUM
  2. MULTIPLE VIT [Concomitant]
  3. ARMODAFINIL. [Suspect]
     Active Substance: ARMODAFINIL
     Indication: CIRCADIAN RHYTHM SLEEP DISORDER
     Dosage: 1
     Route: 048
     Dates: start: 20150907, end: 20151118
  4. LATUDA [Concomitant]
     Active Substance: LURASIDONE HYDROCHLORIDE
  5. BIOTIN [Concomitant]
     Active Substance: BIOTIN
  6. NORCO 5/350 [Concomitant]
  7. FENTANYL TRANSDERMAL SYSTEM [Concomitant]
     Active Substance: FENTANYL
  8. MELATONIN [Concomitant]
     Active Substance: MELATONIN
  9. CYMBALTA [Concomitant]
     Active Substance: DULOXETINE HYDROCHLORIDE
  10. ARMODAFINIL. [Suspect]
     Active Substance: ARMODAFINIL
     Indication: NERVOUS SYSTEM DISORDER
     Dosage: 1
     Route: 048
     Dates: start: 20150907, end: 20151118
  11. MODAFINAL [Concomitant]
  12. NUVIGIL [Concomitant]
     Active Substance: ARMODAFINIL
  13. VITAMIN D [Concomitant]
     Active Substance: CHOLECALCIFEROL
  14. VITAMIN B12 [Concomitant]
     Active Substance: CYANOCOBALAMIN

REACTIONS (5)
  - Tongue movement disturbance [None]
  - Cheilitis [None]
  - Therapeutic response unexpected [None]
  - Mastication disorder [None]
  - Tongue ulceration [None]

NARRATIVE: CASE EVENT DATE: 20151025
